FAERS Safety Report 7515652-7 (Version None)
Quarter: 2011Q2

REPORT INFORMATION
  Report Type: 
  Country: None (occurrence: None)
  Receive Date: 20110526
  Receipt Date: 20110526
  Transmission Date: 20111010
  Serious: Yes (Hospitalization)
  Sender: FDA-Public Use
  Company Number: None

PATIENT
  Age: 49 Year
  Sex: Female
  Weight: 52.4 kg

DRUGS (17)
  1. RITALIN [Concomitant]
  2. MEGACE [Concomitant]
  3. MS CONTIN [Concomitant]
  4. LOVENOX [Concomitant]
  5. COMPAZINE [Concomitant]
  6. DECITABINE [Suspect]
     Indication: COLON CANCER METASTATIC
     Dosage: 45MG/M2/2HRS
     Dates: start: 20110505
  7. DECITABINE [Suspect]
     Indication: COLON CANCER METASTATIC
     Dosage: 45MG/M2/2HRS
     Dates: start: 20110421
  8. DECITABINE [Suspect]
     Indication: COLON CANCER METASTATIC
     Dosage: 45MG/M2/2HRS
     Dates: start: 20110325
  9. DECITABINE [Suspect]
     Indication: COLON CANCER METASTATIC
     Dosage: 45MG/M2/2HRS
     Dates: start: 20110407
  10. PANITUMUMAB 200MG AMGEN [Suspect]
     Indication: COLON CANCER METASTATIC
     Dosage: 6MG/KG/1HR
     Dates: start: 20110331
  11. PANITUMUMAB 200MG AMGEN [Suspect]
     Indication: COLON CANCER METASTATIC
     Dosage: 6MG/KG/1HR
     Dates: start: 20110414
  12. PANITUMUMAB 200MG AMGEN [Suspect]
     Indication: COLON CANCER METASTATIC
     Dosage: 6MG/KG/1HR
     Dates: start: 20110428
  13. LEXAPRO [Concomitant]
  14. LORTAB [Concomitant]
  15. OTC COUGH SUPPRESSANT AND EXPECTORANT [Concomitant]
  16. REGLAN [Concomitant]
  17. DOCUSATE [Concomitant]

REACTIONS (7)
  - COLORECTAL CANCER METASTATIC [None]
  - TROPONIN INCREASED [None]
  - COUGH [None]
  - DYSPNOEA [None]
  - HAEMOPTYSIS [None]
  - PYREXIA [None]
  - NEOPLASM PROGRESSION [None]
